FAERS Safety Report 19845213 (Version 2)
Quarter: 2022Q1

REPORT INFORMATION
  Report Type: Spontaneous
  Country: US (occurrence: US)
  Receive Date: 20210916
  Receipt Date: 20220310
  Transmission Date: 20220423
  Serious: Yes (Death, Hospitalization, Disabling, Other)
  Sender: FDA-Public Use
  Company Number: US-PFIZER INC-2021284316

PATIENT
  Age: 74 Year
  Sex: Male
  Weight: 117.93 kg

DRUGS (2)
  1. PRISTIQ EXTENDED-RELEASE [Suspect]
     Active Substance: DESVENLAFAXINE SUCCINATE
     Indication: Anxiety
     Dosage: 100 MG
  2. PRISTIQ EXTENDED-RELEASE [Suspect]
     Active Substance: DESVENLAFAXINE SUCCINATE
     Indication: Depression
     Dosage: UNK UNK, 1X/DAY
     Route: 048
     Dates: end: 2022

REACTIONS (5)
  - Death [Fatal]
  - Knee arthroplasty [Unknown]
  - Arthritis [Unknown]
  - Myocardial infarction [Unknown]
  - Cardiac failure congestive [Unknown]

NARRATIVE: CASE EVENT DATE: 20220101
